FAERS Safety Report 8344429-8 (Version None)
Quarter: 2012Q1

REPORT INFORMATION
  Report Type: 
  Country: None (occurrence: None)
  Receive Date: 20120315
  Receipt Date: 20110510
  Transmission Date: 20120608
  Serious: No
  Sender: FDA-Public Use
  Company Number: PHHY2011US40227

PATIENT
  Age: 54 Year
  Sex: Male

DRUGS (10)
  1. GILENYA [Suspect]
     Indication: MULTIPLE SCLEROSIS
     Dosage: 0.5 MG, DAILY, ORAL ; 2 DF, ORAL
     Route: 048
     Dates: start: 20110201
  2. BACLOFEN [Concomitant]
  3. ACETAMINOR [Concomitant]
  4. AMPYRA [Concomitant]
  5. DETROL [Concomitant]
  6. PANTOPRAZOLE [Concomitant]
  7. OXCARBAZEPINE [Concomitant]
  8. DIOVAN [Concomitant]
  9. GABAPENTIN [Concomitant]
  10. ALLOPURINOL [Concomitant]

REACTIONS (4)
  - BLOOD PRESSURE DECREASED [None]
  - OVERDOSE [None]
  - WEIGHT BEARING DIFFICULTY [None]
  - DIZZINESS [None]
